FAERS Safety Report 18797753 (Version 1)
Quarter: 2021Q1

REPORT INFORMATION
  Report Type: Spontaneous
  Country: US (occurrence: US)
  Receive Date: 20210128
  Receipt Date: 20210128
  Transmission Date: 20210419
  Serious: No
  Sender: FDA-Public Use
  Company Number: US-SA-2021SA025904

PATIENT
  Age: 63 Year
  Sex: Male

DRUGS (2)
  1. DUPIXENT [Suspect]
     Active Substance: DUPILUMAB
     Indication: DERMATITIS ALLERGIC
  2. DUPIXENT [Suspect]
     Active Substance: DUPILUMAB
     Indication: PRURITUS
     Dosage: 300MG/2ML
     Route: 058
     Dates: start: 20200106

REACTIONS (3)
  - Rash erythematous [Unknown]
  - Pruritus [Unknown]
  - COVID-19 [Unknown]

NARRATIVE: CASE EVENT DATE: 20200116
